FAERS Safety Report 18407381 (Version 2)
Quarter: 2020Q4

REPORT INFORMATION
  Report Type: Spontaneous
  Country: US (occurrence: US)
  Receive Date: 20201020
  Receipt Date: 20201221
  Transmission Date: 20210114
  Serious: Yes (Other)
  Sender: FDA-Public Use
  Company Number: US-BAXTER HEALTHCARE-2092965

PATIENT
  Age: 68 Year
  Sex: Male

DRUGS (2)
  1. RECOTHROM [Suspect]
     Active Substance: THROMBIN ALFA
     Indication: VASCULAR GRAFT
     Route: 042
     Dates: start: 20200615, end: 20200615
  2. RECOTHROM [Suspect]
     Active Substance: THROMBIN ALFA

REACTIONS (1)
  - Hypercoagulation [Recovered/Resolved]

NARRATIVE: CASE EVENT DATE: 20200615
